FAERS Safety Report 17438089 (Version 15)
Quarter: 2024Q1

REPORT INFORMATION
  Report Type: Report from Study
  Country: GB (occurrence: GB)
  Receive Date: 20200220
  Receipt Date: 20240322
  Transmission Date: 20240410
  Serious: Yes (Hospitalization, Disabling, Congenital Anomaly, Other)
  Sender: FDA-Public Use
  Company Number: GB-AUROBINDO-AUR-APL-2020-008750

PATIENT
  Age: 1 Day
  Sex: Male
  Weight: 3.1 kg

DRUGS (40)
  1. LAMIVUDINE [Suspect]
     Active Substance: LAMIVUDINE
     Indication: Antiretroviral therapy
     Dosage: 150 MILLIGRAM, ONCE A DAY
     Route: 064
     Dates: start: 20090101
  2. LAMIVUDINE [Suspect]
     Active Substance: LAMIVUDINE
     Indication: HIV infection
     Dosage: 300 MILLIGRAM, ONCE A DAY
     Route: 064
     Dates: start: 20090101, end: 20100610
  3. LAMIVUDINE [Suspect]
     Active Substance: LAMIVUDINE
     Dosage: UNK
     Route: 064
     Dates: start: 20090922, end: 20100610
  4. LAMIVUDINE [Suspect]
     Active Substance: LAMIVUDINE
     Dosage: UNK
     Route: 064
     Dates: start: 20100610, end: 20100610
  5. NEVIRAPINE EXTENDED RELEASE [Suspect]
     Active Substance: NEVIRAPINE
     Indication: Antiretroviral therapy
     Dosage: 400 MILLIGRAM, ONCE A DAY (400 MILLIGRAM , QD )
     Route: 064
     Dates: start: 20090101, end: 20100610
  6. NEVIRAPINE EXTENDED RELEASE [Suspect]
     Active Substance: NEVIRAPINE
     Indication: HIV infection
     Dosage: UNK
     Route: 064
     Dates: start: 20090922, end: 20100610
  7. NEVIRAPINE EXTENDED RELEASE [Suspect]
     Active Substance: NEVIRAPINE
     Dosage: UNK
     Route: 064
     Dates: start: 20090922
  8. NEVIRAPINE EXTENDED RELEASE [Suspect]
     Active Substance: NEVIRAPINE
     Dosage: UNK
     Route: 064
     Dates: start: 20100610, end: 20100610
  9. NEVIRAPINE EXTENDED RELEASE [Suspect]
     Active Substance: NEVIRAPINE
     Dosage: 400 MILLIGRAM, ONCE A DAY
     Route: 064
     Dates: start: 20100610
  10. TENOFOVIR DISOPROXIL [Suspect]
     Active Substance: TENOFOVIR DISOPROXIL
     Indication: HIV infection
     Dosage: 300 MILLIGRAM, ONCE A DAY (300 MILLIGRAM, QD )
     Route: 064
     Dates: start: 20100610, end: 20100629
  11. TENOFOVIR DISOPROXIL [Suspect]
     Active Substance: TENOFOVIR DISOPROXIL
     Indication: Antiretroviral therapy
     Dosage: 300 MILLIGRAM, ONCE A DAY
     Route: 064
     Dates: start: 20100610, end: 20100610
  12. TENOFOVIR DISOPROXIL [Suspect]
     Active Substance: TENOFOVIR DISOPROXIL
     Dosage: 300 MILLIGRAM, ONCE A DAY
     Route: 064
     Dates: start: 20100610
  13. TENOFOVIR DISOPROXIL [Suspect]
     Active Substance: TENOFOVIR DISOPROXIL
     Dosage: UNK
     Route: 064
     Dates: start: 20100610
  14. TENOFOVIR DISOPROXIL [Suspect]
     Active Substance: TENOFOVIR DISOPROXIL
     Indication: Antiretroviral therapy
     Dosage: 300 MILLIGRAM, ONCE A DAY (MOTHER DOSE: 300 MG, QD)
     Route: 064
     Dates: start: 20100610, end: 20100629
  15. TENOFOVIR DISOPROXIL [Suspect]
     Active Substance: TENOFOVIR DISOPROXIL
     Indication: HIV infection
     Dosage: UNK (MOTHER DOOSE: UNK)
     Route: 064
  16. NEVIRAPINE [Suspect]
     Active Substance: NEVIRAPINE
     Indication: Antiretroviral therapy
     Dosage: 400 MILLIGRAM, ONCE A DAY
     Route: 064
     Dates: start: 20090101, end: 20100610
  17. NEVIRAPINE [Suspect]
     Active Substance: NEVIRAPINE
     Dosage: UNK
     Route: 064
     Dates: start: 20090922, end: 20100610
  18. NEVIRAPINE [Suspect]
     Active Substance: NEVIRAPINE
     Dosage: 400 MILLIGRAM, ONCE A DAY
     Route: 064
     Dates: start: 20100610
  19. LOPINAVIR\RITONAVIR [Suspect]
     Active Substance: LOPINAVIR\RITONAVIR
     Indication: HIV infection
     Dosage: UNK
     Route: 064
     Dates: start: 20100610, end: 20100629
  20. LOPINAVIR\RITONAVIR [Suspect]
     Active Substance: LOPINAVIR\RITONAVIR
     Indication: Antiretroviral therapy
  21. ISENTRESS [Suspect]
     Active Substance: RALTEGRAVIR POTASSIUM
     Indication: Antiretroviral therapy
     Dosage: 800 MILLIGRAM, ONCE A DAY
     Route: 064
     Dates: start: 20100610
  22. ISENTRESS [Suspect]
     Active Substance: RALTEGRAVIR POTASSIUM
     Indication: HIV infection
     Dosage: 3200 MILLIGRAM, ONCE A DAY ( 800 MILLIGRAM, QID )
     Route: 064
     Dates: start: 20100610
  23. ISENTRESS [Suspect]
     Active Substance: RALTEGRAVIR POTASSIUM
     Dosage: 1 DOSAGE FORM, ONCE A DAY
     Route: 064
     Dates: start: 20100610
  24. KALETRA [Suspect]
     Active Substance: LOPINAVIR\RITONAVIR
     Indication: Antiretroviral therapy
     Dosage: MOTHER DOSE: UNK
     Route: 064
     Dates: start: 20100610, end: 20100629
  25. KALETRA [Suspect]
     Active Substance: LOPINAVIR\RITONAVIR
     Indication: HIV infection
     Dosage: MOTHER DOSE: UNK
     Route: 064
     Dates: start: 20100710
  26. LOPINAVIR\RITONAVIR [Suspect]
     Active Substance: LOPINAVIR\RITONAVIR
     Indication: HIV infection
     Dosage: UNK
     Route: 064
     Dates: start: 20100610, end: 20100629
  27. LOPINAVIR\RITONAVIR [Suspect]
     Active Substance: LOPINAVIR\RITONAVIR
     Indication: Antiretroviral therapy
     Dosage: UNK
     Route: 064
     Dates: start: 20100610
  28. RALTEGRAVIR [Suspect]
     Active Substance: RALTEGRAVIR
     Indication: Antiretroviral therapy
     Dosage: 1 DOSAGE FORM, ONCE A DAY
     Route: 064
     Dates: start: 20100610
  29. RALTEGRAVIR [Suspect]
     Active Substance: RALTEGRAVIR
     Indication: HIV infection
     Dosage: 800 MILLIGRAM, ONCE A DAY (800 MILLIGRAM QD )
     Route: 064
     Dates: start: 20100610
  30. RALTEGRAVIR [Suspect]
     Active Substance: RALTEGRAVIR
     Indication: Product used for unknown indication
     Dosage: 1 DOSAGE FORM, ONCE A DAY
     Route: 064
     Dates: start: 20100610
  31. VIRAMUNE [Suspect]
     Active Substance: NEVIRAPINE
     Indication: HIV infection
     Dosage: 400 MILLIGRAM, ONCE A DAY
     Route: 064
     Dates: start: 20090101, end: 20100610
  32. VIRAMUNE [Suspect]
     Active Substance: NEVIRAPINE
     Dosage: UNK
     Route: 064
     Dates: start: 20100710
  33. VIRAMUNE [Suspect]
     Active Substance: NEVIRAPINE
     Dosage: 400 MILLIGRAM, ONCE A DAY
     Route: 064
     Dates: start: 20100610
  34. VIREAD [Suspect]
     Active Substance: TENOFOVIR DISOPROXIL FUMARATE
     Indication: HIV infection
     Dosage: 300 MILLIGRAM, ONCE A DAY
     Route: 064
     Dates: start: 20100610, end: 20100629
  35. VIREAD [Suspect]
     Active Substance: TENOFOVIR DISOPROXIL FUMARATE
     Indication: Antiretroviral therapy
     Dosage: UNK
     Route: 064
     Dates: start: 20100610
  36. ZIDOVUDINE [Suspect]
     Active Substance: ZIDOVUDINE
     Indication: HIV infection
     Dosage: 600 MILLIGRAM, ONCE A DAY (600 MILLIGRAM, QD )
     Route: 064
     Dates: start: 20090110, end: 20100610
  37. ZIDOVUDINE [Suspect]
     Active Substance: ZIDOVUDINE
     Indication: Antiretroviral therapy
     Dosage: 800 MILLIGRAM, ONCE A DAY
     Route: 064
     Dates: start: 20090110
  38. ZIDOVUDINE [Suspect]
     Active Substance: ZIDOVUDINE
     Dosage: UNK
     Route: 064
     Dates: start: 20090922, end: 20100610
  39. ZIDOVUDINE [Suspect]
     Active Substance: ZIDOVUDINE
     Dosage: 800 MILLIGRAM, ONCE A DAY
     Route: 064
     Dates: start: 20100610
  40. RITONAVIR [Suspect]
     Active Substance: RITONAVIR
     Indication: Foetal exposure during pregnancy
     Dosage: UNK
     Route: 064
     Dates: start: 20100610, end: 20100629

REACTIONS (2)
  - Volvulus [Not Recovered/Not Resolved]
  - Foetal exposure during pregnancy [Recovered/Resolved]

NARRATIVE: CASE EVENT DATE: 20100610
